FAERS Safety Report 4452049-0 (Version None)
Quarter: 2004Q3

REPORT INFORMATION
  Report Type: 
  Country: None (occurrence: None)
  Receive Date: 20040913
  Receipt Date: 20040628
  Transmission Date: 20050211
  Serious: No
  Sender: FDA-Public Use
  Company Number: 2004-BP-05129BP(0)

PATIENT
  Age: 56 Year
  Sex: Female

DRUGS (16)
  1. SPIRIVA [Suspect]
     Indication: CHRONIC OBSTRUCTIVE AIRWAYS DISEASE
     Dosage: 18 MCG (18 MCG), IH
     Dates: start: 20040528
  2. SINGULAIR [Concomitant]
  3. FLOVENT [Concomitant]
  4. SEREVENT [Concomitant]
  5. DUONEB [Concomitant]
  6. LASIX (LASIX [Concomitant]
  7. PROTONIX [Concomitant]
  8. METHOTREXATE [Concomitant]
  9. EMBREL (ETANERCEPT) [Concomitant]
  10. ZESTRIL [Concomitant]
  11. METFORMIN HCL [Concomitant]
  12. KLOR-CON [Concomitant]
  13. PREDNISONE [Concomitant]
  14. THERAGRAN M (THERAGRAN) [Concomitant]
  15. ALEVE [Concomitant]
  16. ALUBERTOL NEBULIZER (SALBUTAMOL) [Concomitant]

REACTIONS (1)
  - LARYNGITIS [None]
